FAERS Safety Report 6186091-9 (Version None)
Quarter: 2009Q2

REPORT INFORMATION
  Report Type: 
  Country: None (occurrence: None)
  Receive Date: 20090511
  Receipt Date: 20090429
  Transmission Date: 20091009
  Serious: Yes (Hospitalization, Disabling, Other)
  Sender: FDA-Public Use
  Company Number: CA-WYE-H09157009

PATIENT
  Sex: Male
  Weight: 71.4 kg

DRUGS (11)
  1. TEMSIROLIMUS [Suspect]
     Indication: RENAL CELL CARCINOMA
     Route: 042
     Dates: start: 20090318, end: 20090422
  2. LIPITOR [Concomitant]
     Indication: HYPERCHOLESTEROLAEMIA
     Dosage: 40 MG - FREQUENCY NOT SPECIFIED
     Route: 048
     Dates: start: 20080616
  3. LYRICA [Concomitant]
     Indication: PROPHYLAXIS
     Dosage: 75 ML - FREQUENCY NOT SPECIFIED
     Route: 048
     Dates: start: 20081107
  4. RHINARIS [Concomitant]
     Indication: NASAL DRYNESS
     Dosage: PRN
     Route: 055
     Dates: start: 20090322
  5. NORVASC [Concomitant]
     Indication: HYPERTENSION
     Dosage: 10 MG  - FREQUENCY NOT SPECIFIED
     Route: 048
     Dates: start: 20090414
  6. ACETAMINOPHEN [Concomitant]
     Indication: HEADACHE
     Dosage: 650 MG PRN
     Route: 048
     Dates: start: 20090319
  7. HYDROCHLOROTHIAZIDE [Concomitant]
     Indication: HYPERTENSION
     Dosage: 25 MG  - FREQUENCY NOT SPECIFIED
     Route: 048
     Dates: start: 20090422
  8. BEVACIZUMAB [Suspect]
     Indication: RENAL CELL CARCINOMA
     Route: 042
     Dates: start: 20090318, end: 20090401
  9. BEVACIZUMAB [Suspect]
     Route: 042
     Dates: end: 20090422
  10. BEVACIZUMAB [Suspect]
     Dosage: DOSE NOT PROVIDED
     Route: 042
     Dates: start: 20090506
  11. ATIVAN [Concomitant]
     Indication: NERVOUSNESS
     Route: 048
     Dates: start: 20090318

REACTIONS (2)
  - HEADACHE [None]
  - PNEUMONIA [None]
